FAERS Safety Report 25405429 (Version 1)
Quarter: 2025Q2

REPORT INFORMATION
  Report Type: Spontaneous
  Country: GB (occurrence: GB)
  Receive Date: 20250606
  Receipt Date: 20250606
  Transmission Date: 20250717
  Serious: Yes (Other)
  Sender: EMD SERONO INC
  Company Number: GB-Merck Healthcare KGaA-2025027681

PATIENT
  Age: 9 Decade
  Sex: Female

DRUGS (1)
  1. TEPOTINIB [Suspect]
     Active Substance: TEPOTINIB
     Indication: Product used for unknown indication

REACTIONS (4)
  - Renal impairment [Recovering/Resolving]
  - Condition aggravated [Recovering/Resolving]
  - Blood albumin decreased [Recovering/Resolving]
  - Oedema [Recovering/Resolving]
